FAERS Safety Report 7841605-5 (Version None)
Quarter: 2011Q4

REPORT INFORMATION
  Report Type: 
  Country: None (occurrence: None)
  Receive Date: 20111025
  Receipt Date: 20111018
  Transmission Date: 20120403
  Serious: Yes (Other)
  Sender: FDA-Public Use
  Company Number: CN-GENZYME-THYM-1002595

PATIENT
  Age: 32 Year
  Sex: Male

DRUGS (23)
  1. NEUMEGA [Concomitant]
     Indication: PROPHYLAXIS AGAINST GRAFT VERSUS HOST DISEASE
     Dosage: 1.5 MG, QD
     Route: 058
  2. NEUPOGEN [Concomitant]
     Dosage: 5 MCG/KG, QD
     Route: 065
  3. CYCLOSPORINE [Concomitant]
     Indication: PROPHYLAXIS AGAINST GRAFT VERSUS HOST DISEASE
     Route: 048
  4. NEUPOGEN [Concomitant]
     Indication: HAEMATOPOIETIC STEM CELL MOBILISATION
     Dosage: UNK
     Route: 058
  5. GANCICLOVIR [Concomitant]
     Indication: PROPHYLAXIS AGAINST GRAFT VERSUS HOST DISEASE
     Dosage: UNK
     Route: 065
  6. SALVIA MILTIORRHIZA [Concomitant]
     Indication: PROPHYLAXIS
     Dosage: 250 ML, QD
     Route: 065
  7. AMINO ACIDS NOS [Concomitant]
     Indication: PROPHYLAXIS
     Route: 065
  8. IMMUNE GLOBULIN NOS [Concomitant]
     Indication: PROPHYLAXIS
     Dosage: UNK
     Route: 042
  9. ACYCLOVIR [Concomitant]
     Indication: INFECTION PROPHYLAXIS
     Dosage: UNK
     Route: 042
  10. THYMOGLOBULIN [Suspect]
     Indication: PROPHYLAXIS AGAINST GRAFT VERSUS HOST DISEASE
  11. CYCLOPHOSPHAMIDE [Concomitant]
     Indication: BONE MARROW CONDITIONING REGIMEN
     Dosage: 50 MG/KG, QD
     Route: 042
  12. MYCOPHENOLATE MOFETIL [Concomitant]
     Indication: PROPHYLAXIS AGAINST GRAFT VERSUS HOST DISEASE
     Dosage: 0.5 G, BID
     Route: 048
  13. MESNA [Concomitant]
     Indication: PROPHYLAXIS
     Dosage: UNK
     Route: 065
  14. BUSULFAN [Concomitant]
     Indication: BONE MARROW CONDITIONING REGIMEN
  15. THYMOGLOBULIN [Suspect]
     Indication: BONE MARROW CONDITIONING REGIMEN
     Dosage: 2.5 MG/KG, QD
     Route: 042
     Dates: start: 20081112, end: 20081116
  16. CYTARABINE [Concomitant]
     Indication: BONE MARROW CONDITIONING REGIMEN
     Dosage: UNK
     Route: 065
  17. METHOTREXATE [Concomitant]
     Indication: PROPHYLAXIS AGAINST GRAFT VERSUS HOST DISEASE
     Dosage: 15 MG/M2, ONCE
     Route: 042
  18. SODIUM BICARBONATE [Concomitant]
     Indication: PH URINE
     Route: 065
  19. HEPARIN [Concomitant]
     Indication: PROPHYLAXIS
     Dosage: 2500 U, QD
     Route: 065
  20. FAT EMULSIONS [Concomitant]
     Indication: PROPHYLAXIS
     Route: 065
  21. METHOTREXATE [Concomitant]
     Dosage: 30 MG/M2, UNK
     Route: 042
  22. CILASTATIN W [Concomitant]
     Indication: PROPHYLAXIS
     Dosage: UNK
     Route: 065
  23. SEMUSTINE CAP [Concomitant]
     Indication: BONE MARROW CONDITIONING REGIMEN

REACTIONS (2)
  - CHRONIC GRAFT VERSUS HOST DISEASE [None]
  - ACUTE GRAFT VERSUS HOST DISEASE [None]
